FAERS Safety Report 7381406-8 (Version None)
Quarter: 2011Q1

REPORT INFORMATION
  Report Type: 
  Country: None (occurrence: None)
  Receive Date: 20110322
  Receipt Date: 20110307
  Transmission Date: 20110831
  Serious: Yes (Other)
  Sender: FDA-Public Use
  Company Number: 11-012-02

PATIENT
  Age: 54 Year
  Sex: Female
  Weight: 76 kg

DRUGS (2)
  1. VALPROATE SODIUM (NO PREF. NAME) [Suspect]
     Indication: CONVULSION
     Dosage: IV; 1250 MG;Q8H;IV
     Route: 042
  2. DORIPENEM (NO PREF. NAME) [Suspect]
     Indication: ENTEROBACTER INFECTION
     Dosage: 500 MG;Q8H;IV
     Route: 042

REACTIONS (6)
  - NO THERAPEUTIC RESPONSE [None]
  - PNEUMONIA KLEBSIELLA [None]
  - ENTEROBACTER TEST POSITIVE [None]
  - PNEUMONIA ASPIRATION [None]
  - ANTICONVULSANT DRUG LEVEL BELOW THERAPEUTIC [None]
  - DRUG INTERACTION [None]
